FAERS Safety Report 8425698-2 (Version None)
Quarter: 2012Q2

REPORT INFORMATION
  Report Type: 
  Country: None (occurrence: None)
  Receive Date: 20120531
  Receipt Date: 20120522
  Transmission Date: 20120825
  Serious: Yes (Other)
  Sender: FDA-Public Use
  Company Number: 2012SP027638

PATIENT
  Age: 87 Year
  Sex: Female

DRUGS (9)
  1. AERIUS (DESLORATADINE /01398501/) [Suspect]
     Indication: SKIN LESION
     Dosage: 5 MG;QPM;PO
     Route: 048
     Dates: start: 20120411, end: 20120411
  2. HUMALOG [Concomitant]
  3. LEVEMIR [Concomitant]
  4. ALDACTONE [Suspect]
     Indication: OEDEMA PERIPHERAL
     Dosage: 25 MG;QD;PO
     Route: 048
     Dates: start: 20120406
  5. PANTOPRAZOLE [Concomitant]
  6. LASIX [Concomitant]
  7. PROPRANOLOL [Concomitant]
  8. FUROSEMIDE [Suspect]
     Indication: OEDEMA PERIPHERAL
     Dosage: 60 MG;QD;IV
     Route: 042
     Dates: start: 20120406, end: 20120410
  9. BUMETANIDE [Suspect]
     Indication: PRODUCT USED FOR UNKNOWN INDICATION
     Dosage: 1 MG;QD;PO
     Route: 048
     Dates: start: 20120410

REACTIONS (3)
  - ASTERIXIS [None]
  - HYPERAMMONAEMIA [None]
  - HEPATIC ENCEPHALOPATHY [None]
